FAERS Safety Report 15919208 (Version 6)
Quarter: 2021Q4

REPORT INFORMATION
  Report Type: Report from Study
  Country: US (occurrence: US)
  Receive Date: 20190205
  Receipt Date: 20211121
  Transmission Date: 20220303
  Serious: Yes (Hospitalization, Other)
  Sender: FDA-Public Use
  Company Number: PHEH2019US004715

PATIENT
  Sex: Male

DRUGS (3)
  1. AFINITOR DISPERZ [Suspect]
     Active Substance: EVEROLIMUS
     Indication: Epilepsy
     Dosage: 10 MG, QD
     Route: 048
     Dates: start: 20140901
  2. AFINITOR DISPERZ [Suspect]
     Active Substance: EVEROLIMUS
     Indication: Seizure
     Dosage: 10 MG, QD
     Route: 048
     Dates: start: 20141011
  3. AFINITOR DISPERZ [Suspect]
     Active Substance: EVEROLIMUS
     Indication: Tuberous sclerosis complex

REACTIONS (6)
  - Influenza [Recovered/Resolved]
  - Seizure [Unknown]
  - Eating disorder [Unknown]
  - Hypersensitivity [Recovering/Resolving]
  - Product dose omission issue [Unknown]
  - Oral pain [Recovered/Resolved]

NARRATIVE: CASE EVENT DATE: 20140101
